FAERS Safety Report 6668244-6 (Version None)
Quarter: 2010Q2

REPORT INFORMATION
  Report Type: 
  Country: None (occurrence: None)
  Receive Date: 20100406
  Receipt Date: 20100330
  Transmission Date: 20101027
  Serious: Yes (Hospitalization, Other)
  Sender: FDA-Public Use
  Company Number: US-ELI_LILLY_AND_COMPANY-US201003000897

PATIENT
  Sex: Female
  Weight: 97.052 kg

DRUGS (15)
  1. GEMCITABINE HCL [Suspect]
     Indication: OVARIAN CANCER RECURRENT
     Dosage: 1000 MG/M2, OTHER
     Route: 042
     Dates: start: 20091103, end: 20100224
  2. GEMCITABINE HCL [Suspect]
     Dates: start: 20100316
  3. CARBOPLATIN [Suspect]
     Indication: OVARIAN CANCER RECURRENT
     Dosage: 3 D/F, OTHER
     Route: 042
     Dates: start: 20091103, end: 20100224
  4. CARBOPLATIN [Suspect]
     Dates: start: 20100316
  5. BEVACIZUMAB [Suspect]
     Indication: OVARIAN CANCER RECURRENT
     Dosage: 10 MG/KG, OTHER
     Route: 042
     Dates: start: 20091103, end: 20100224
  6. BEVACIZUMAB [Suspect]
     Dates: start: 20100316
  7. BENICAR [Concomitant]
     Dosage: 20 MG, DAILY (1/D)
  8. BENICAR HCT [Concomitant]
     Dosage: 1 D/F, DAILY (1/D)
  9. LEVOTHYROXINE SODIUM [Concomitant]
     Dosage: 0.5 MG, DAILY (1/D)
  10. ASPIRIN [Concomitant]
     Dosage: 81 MG, DAILY (1/D)
  11. VITAMIN B6 [Concomitant]
     Dosage: 50 MG, 2/D
  12. ICAPS [Concomitant]
     Dosage: UNK, 2/D
  13. REGLAN [Concomitant]
     Dosage: 10 MG, 4/D
  14. INDOMETHACIN [Concomitant]
     Dosage: 50 MG, 3/D
  15. ZOFRAN [Concomitant]
     Dosage: 8 MG, DAILY (1/D)

REACTIONS (4)
  - DEHYDRATION [None]
  - HYPERKALAEMIA [None]
  - NAUSEA [None]
  - NEUTROPENIA [None]
